FAERS Safety Report 6174222-6 (Version None)
Quarter: 2009Q2

REPORT INFORMATION
  Report Type: 
  Country: None (occurrence: None)
  Receive Date: 20090430
  Receipt Date: 20080321
  Transmission Date: 20091009
  Serious: No
  Sender: FDA-Public Use
  Company Number: US-ASTRAZENECA-2008UW05802

PATIENT
  Age: 34 Year
  Sex: Male

DRUGS (3)
  1. NEXIUM [Suspect]
     Indication: DIARRHOEA
     Route: 048
     Dates: start: 20080320, end: 20080320
  2. NEXIUM [Suspect]
     Indication: DYSPEPSIA
     Route: 048
     Dates: start: 20080320, end: 20080320
  3. NEXIUM [Suspect]
     Indication: ERUCTATION
     Route: 048
     Dates: start: 20080320, end: 20080320

REACTIONS (2)
  - DIARRHOEA [None]
  - HAEMATOCHEZIA [None]
